FAERS Safety Report 12199705 (Version 1)
Quarter: 2016Q1

REPORT INFORMATION
  Report Type: Report from Study
  Country: US (occurrence: US)
  Receive Date: 20160322
  Receipt Date: 20160322
  Transmission Date: 20160526
  Serious: Yes (Other)
  Sender: FDA-Public Use
  Company Number: US-PFIZER INC-2016155967

PATIENT
  Age: 9 Year
  Sex: Male
  Weight: 28.7 kg

DRUGS (16)
  1. DEXAMETHASONE. [Concomitant]
     Active Substance: DEXAMETHASONE
     Dosage: 5MG/M2 PO BID ON DAYS 1-5. COURSE B: CYCLES 2, 4 AND 6 (CYCLE= 21 DAYS)
     Route: 048
  2. CRIZOTINIB [Suspect]
     Active Substance: CRIZOTINIB
     Indication: ANAPLASTIC LARGE CELL LYMPHOMA T- AND NULL-CELL TYPES
     Dosage: 165MG/M2 PO BID ON DAYS 1-21. CYCLES 1, 3 AND 5 (CYCLE= 21 DAYS)
     Route: 048
  3. VP-16 [Concomitant]
     Active Substance: ETOPOSIDE
     Indication: ANAPLASTIC LARGE CELL LYMPHOMA T- AND NULL-CELL TYPES
     Dosage: 100MG/M2 IV OVER 2 HOURS ON DAYS 4 AND 5. CYCLES 1, 3 AND 5 (CYCLE= 21 DAYS)
     Route: 042
  4. IFOSFAMIDE. [Concomitant]
     Active Substance: IFOSFAMIDE
     Indication: ANAPLASTIC LARGE CELL LYMPHOMA T- AND NULL-CELL TYPES
     Dosage: 800MG/M2 IV OVER 60 MIN ON DAYS 1-5. CYCLES 1, 3 AND 5 (CYCLE= 21 DAYS)
     Route: 042
  5. METHOTREXATE SODIUM. [Concomitant]
     Active Substance: METHOTREXATE SODIUM
     Indication: ANAPLASTIC LARGE CELL LYMPHOMA T- AND NULL-CELL TYPES
     Dosage: 7.5-12MG IT ON DAY 1 (AGE BASED DOSING). PROPHASE (CYCLE = 5 DAYS)
     Route: 037
  6. METHOTREXATE SODIUM. [Concomitant]
     Active Substance: METHOTREXATE SODIUM
     Dosage: 3000MG/M2 IV OVER 3 HOURS ON DAY 1. COURSE A: CYCLES 1, 3 AND 5 (CYCLE= 21 DAYS)
     Route: 042
  7. CYTARABINE. [Concomitant]
     Active Substance: CYTARABINE
     Dosage: 150MG/M2 IV OVER 1-30 MINUTES Q12 HOURS ON DAYS 4 AND 5 (TOTAL 4 DOSES). COURSE A: CYCLES 1, 3 AND 5
     Route: 042
  8. DEXAMETHASONE. [Concomitant]
     Active Substance: DEXAMETHASONE
     Indication: ANAPLASTIC LARGE CELL LYMPHOMA T- AND NULL-CELL TYPES
     Dosage: 5MG/M2 PO QD ON DAYS 1-2 AND 5MG/M2 PO BID ON DAYS 3-5. PROPHASE (CYCLE = 5 DAYS)
     Route: 048
  9. HYDROCORTISONE ACETATE. [Concomitant]
     Active Substance: HYDROCORTISONE ACETATE
     Indication: ANAPLASTIC LARGE CELL LYMPHOMA T- AND NULL-CELL TYPES
     Dosage: 7.5-12MG IT ON DAY 1 (AGE BASED DOSING). PROPHASE (CYCLE = 5 DAYS)
     Route: 037
  10. DOXORUBICIN HCL [Concomitant]
     Active Substance: DOXORUBICIN HYDROCHLORIDE
     Indication: ANAPLASTIC LARGE CELL LYMPHOMA T- AND NULL-CELL TYPES
     Dosage: 25MG/M2 IV OVER 1-15 MIN ON DAYS 4 AND 5. COURSE B: CYCLES 2, 4 AND 6 (CYCLE= 21 DAYS)
     Route: 042
  11. CRIZOTINIB [Suspect]
     Active Substance: CRIZOTINIB
     Dosage: 165MG/M2 PO BID ON DAYS 1-21, CYCLES 2, 4 AND 6 (CYCLE= 21 DAYS)
     Route: 048
     Dates: end: 20160115
  12. CYTARABINE. [Concomitant]
     Active Substance: CYTARABINE
     Indication: ANAPLASTIC LARGE CELL LYMPHOMA T- AND NULL-CELL TYPES
     Dosage: 15-24MG IT ON DAY 1 (AGE BASED DOSING). PROPHASE (CYCLE = 5 DAYS)
     Route: 037
  13. CYCLOPHOSPHAMIDE. [Concomitant]
     Active Substance: CYCLOPHOSPHAMIDE
     Indication: ANAPLASTIC LARGE CELL LYMPHOMA T- AND NULL-CELL TYPES
     Dosage: 200MG/M2 IV OVER 15-30 MINUTES ON DAYS 1 AND 2. PROPHASE (CYCLE = 5 DAYS)
     Route: 042
  14. METHOTREXATE SODIUM. [Concomitant]
     Active Substance: METHOTREXATE SODIUM
     Dosage: 3000MG/M2 IV OVER 3 HOURS ON DAY 1. COURSE B: CYCLES 2, 4 AND 6 (CYCLE= 21 DAYS)
     Route: 042
  15. CYCLOPHOSPHAMIDE. [Concomitant]
     Active Substance: CYCLOPHOSPHAMIDE
     Dosage: 200MG/M2 IV OVER 15-30 MINUTES ON DAYS 1-5. COURSE B: CYCLES 2, 4 AND 6 (CYCLE= 21 DAYS)
     Route: 042
  16. DEXAMETHASONE. [Concomitant]
     Active Substance: DEXAMETHASONE
     Dosage: 5MG/M2 PO BID ON DAYS 1-5. COURSE A: CYCLES 1, 3 AND 5 (CYCLE= 21 DAYS)
     Route: 048

REACTIONS (1)
  - Embolism [Recovering/Resolving]

NARRATIVE: CASE EVENT DATE: 20160115
